FAERS Safety Report 16921138 (Version 1)
Quarter: 2019Q4

REPORT INFORMATION
  Report Type: Spontaneous
  Country: BE (occurrence: BE)
  Receive Date: 20191015
  Receipt Date: 20191015
  Transmission Date: 20200122
  Serious: Yes (Other)
  Sender: FDA-Public Use
  Company Number: BE-PFIZER INC-2019442923

PATIENT
  Age: 54 Year
  Sex: Male

DRUGS (1)
  1. PANTOPRAZOLE [Suspect]
     Active Substance: PANTOPRAZOLE
     Dosage: 80 MILLIGRAM, BID
     Route: 065

REACTIONS (4)
  - Vomiting [Unknown]
  - Paraesthesia oral [Unknown]
  - Myalgia [Unknown]
  - Hypomagnesaemia [Recovered/Resolved]
